FAERS Safety Report 5794854-4 (Version None)
Quarter: 2008Q2

REPORT INFORMATION
  Report Type: 
  Country: None (occurrence: None)
  Receive Date: 20080630
  Receipt Date: 20080625
  Transmission Date: 20081010
  Serious: Yes (Hospitalization)
  Sender: FDA-Public Use
  Company Number: JP-AVENTIS-200811357JP

PATIENT
  Age: 85 Year
  Sex: Male
  Weight: 51.8 kg

DRUGS (10)
  1. LASIX [Suspect]
     Route: 042
     Dates: start: 20080321, end: 20080323
  2. LASIX [Suspect]
     Route: 048
     Dates: start: 20080324, end: 20080423
  3. TIENAM [Suspect]
     Indication: PNEUMONIA
     Route: 041
     Dates: start: 20080322, end: 20080403
  4. AMPICILLIN SODIUM/SULBACTAM SODIUM [Suspect]
     Indication: PNEUMONIA
     Route: 041
     Dates: start: 20080320, end: 20080327
  5. ALMYLAR [Concomitant]
     Route: 048
  6. BUFFERIN [Concomitant]
     Route: 048
  7. RADEN [Concomitant]
     Route: 048
  8. NORVASC [Concomitant]
     Indication: HYPERTENSION
     Route: 048
  9. NU-LOTAN [Concomitant]
     Indication: HYPERTENSION
     Route: 048
  10. MAGNESIUM OXIDE [Concomitant]
     Indication: CONSTIPATION
     Route: 048
     Dates: start: 20080324, end: 20080430

REACTIONS (1)
  - ALVEOLITIS ALLERGIC [None]
